FAERS Safety Report 8235608 (Version 3)
Quarter: 2013Q2

REPORT INFORMATION
  Report Type: Report from Study
  Country: VE (occurrence: VE)
  Receive Date: 20111108
  Receipt Date: 20130527
  Transmission Date: 20140414
  Serious: Yes (Hospitalization, Other)
  Sender: FDA-Public Use
  Company Number: PHHY2011VE097552

PATIENT
  Age: 67 Year
  Sex: Female

DRUGS (8)
  1. ACLASTA [Suspect]
     Indication: OSTEOPOROSIS
     Dosage: 5 MG, ONCE IN A YEAR
     Route: 042
     Dates: start: 20101029
  2. ACLASTA [Suspect]
     Dosage: 5 MG, ONCE IN A YEAR
     Route: 042
     Dates: start: 20121108
  3. FLEXURE [Concomitant]
     Indication: OSTEOARTHRITIS
     Dosage: 1 DF, ONE ENVELOPE DAILY
     Route: 048
  4. ARANDA                             /02225901/ [Concomitant]
     Indication: HYPERTENSION
     Dosage: 1 DF, 1 PILL DAILY
     Route: 048
  5. CALCIBON D [Concomitant]
     Dosage: 1 DF, 1 PILL DAILY
  6. TAPAZOL [Concomitant]
     Indication: HYPERTHYROIDISM
     Dosage: 2 DF,  2 PILL DAILY
     Route: 048
  7. OMEPRAZOLE [Concomitant]
     Indication: GASTRIC DISORDER
     Dosage: 2 DF, 2 PILLS DAILY
  8. FORTEO [Concomitant]
     Indication: OSTEOPOROSIS
     Dosage: 20 UG, DAILY
     Route: 058
     Dates: start: 2011, end: 2011

REACTIONS (15)
  - Upper limb fracture [Recovered/Resolved]
  - Epistaxis [Recovered/Resolved]
  - Hypertensive crisis [Recovered/Resolved]
  - Eye haemorrhage [Recovered/Resolved]
  - Swelling [Unknown]
  - Dizziness [Recovered/Resolved]
  - Vomiting [Unknown]
  - Dyspnoea [Unknown]
  - Meniscus injury [Not Recovered/Not Resolved]
  - Gastritis [Not Recovered/Not Resolved]
  - Lip dry [Not Recovered/Not Resolved]
  - Influenza [Recovered/Resolved]
  - Malaise [Recovered/Resolved]
  - Arthralgia [Not Recovered/Not Resolved]
  - Pain [Not Recovered/Not Resolved]
